FAERS Safety Report 4972732-8 (Version None)
Quarter: 2006Q2

REPORT INFORMATION
  Report Type: 
  Country: None (occurrence: None)
  Receive Date: 20060414
  Receipt Date: 20060404
  Transmission Date: 20061013
  Serious: Yes (Other)
  Sender: FDA-Public Use
  Company Number: CA-JNJFOC-20060400817

PATIENT
  Sex: Male

DRUGS (2)
  1. REMICADE [Suspect]
     Indication: CROHN'S DISEASE
     Route: 042
  2. SOLU-CORTEF [Concomitant]
     Indication: PREMEDICATION

REACTIONS (7)
  - CHEST DISCOMFORT [None]
  - COUGH [None]
  - FEELING COLD [None]
  - FLUSHING [None]
  - HYPERAEMIA [None]
  - INFUSION RELATED REACTION [None]
  - SURGERY [None]
